FAERS Safety Report 6114679-X (Version None)
Quarter: 2009Q1

REPORT INFORMATION
  Report Type: 
  Country: None (occurrence: None)
  Receive Date: 20090311
  Receipt Date: 20080215
  Transmission Date: 20090719
  Serious: Yes (Other)
  Sender: FDA-Public Use
  Company Number: US200802002002

PATIENT
  Age: 56 Year
  Sex: Female

DRUGS (3)
  1. GEMZAR [Suspect]
     Indication: TRANSITIONAL CELL CARCINOMA
     Dosage: 1600 MG OTHER UNK
     Dates: start: 20071201, end: 20080101
  2. CISPLATIN [Concomitant]
  3. ATIVAN [Concomitant]

REACTIONS (1)
  - MALIGNANT NEOPLASM PROGRESSION [None]
